FAERS Safety Report 17703498 (Version 1)
Quarter: 2020Q2

REPORT INFORMATION
  Report Type: Report from Study
  Country: CR (occurrence: CR)
  Receive Date: 20200424
  Receipt Date: 20200424
  Transmission Date: 20200714
  Serious: Yes (Other)
  Sender: FDA-Public Use
  Company Number: PHHY2018CR006878

PATIENT
  Age: 47 Year
  Sex: Female

DRUGS (1)
  1. GILENYA [Suspect]
     Active Substance: FINGOLIMOD HYDROCHLORIDE
     Indication: RELAPSING-REMITTING MULTIPLE SCLEROSIS
     Dosage: 0.5 MG, QD
     Route: 048
     Dates: start: 20180421

REACTIONS (26)
  - Salivary gland pain [Not Recovered/Not Resolved]
  - Neutrophil count increased [Unknown]
  - Influenza [Not Recovered/Not Resolved]
  - Head discomfort [Unknown]
  - Asthenopia [Unknown]
  - Presbyopia [Unknown]
  - Limb discomfort [Not Recovered/Not Resolved]
  - Eye pain [Unknown]
  - Vomiting [Unknown]
  - Chest pain [Unknown]
  - Rhinalgia [Unknown]
  - Secretion discharge [Unknown]
  - Feeling abnormal [Recovering/Resolving]
  - Migraine [Unknown]
  - Optic nerve cupping [Unknown]
  - Insomnia [Unknown]
  - Eye disorder [Unknown]
  - Paraesthesia [Recovering/Resolving]
  - Sinusitis [Recovering/Resolving]
  - Lymphocyte count decreased [Unknown]
  - Migraine with aura [Unknown]
  - Asthenia [Recovering/Resolving]
  - Nasopharyngitis [Recovering/Resolving]
  - Stress [Unknown]
  - Headache [Recovering/Resolving]
  - Fatigue [Unknown]

NARRATIVE: CASE EVENT DATE: 202002
